FAERS Safety Report 13611120 (Version 1)
Quarter: 2017Q2

REPORT INFORMATION
  Report Type: Spontaneous
  Country: US (occurrence: US)
  Receive Date: 20170604
  Receipt Date: 20170604
  Transmission Date: 20170830
  Serious: Yes (Other)
  Sender: FDA-Public Use
  Company Number: None

PATIENT
  Age: 60 Year
  Sex: Female
  Weight: 83.25 kg

DRUGS (9)
  1. COLLAGEN [Concomitant]
     Active Substance: COLLAGEN
  2. VITAMIN C [Concomitant]
     Active Substance: ASCORBIC ACID
  3. COQ10 [Concomitant]
     Active Substance: UBIDECARENONE
  4. GARLIC PILL [Concomitant]
  5. ATORVASTATIN 80MG [Suspect]
     Active Substance: ATORVASTATIN
     Indication: BLOOD CHOLESTEROL INCREASED
     Dosage: ?          QUANTITY:90 TABLET(S);?
     Route: 048
     Dates: start: 20161217, end: 20170428
  6. AMLODIPINE [Concomitant]
     Active Substance: AMLODIPINE BESYLATE
  7. MULTI VITAMIN [Concomitant]
     Active Substance: VITAMINS
  8. FISH OIL [Concomitant]
     Active Substance: FISH OIL
  9. LISINOPRIL. [Concomitant]
     Active Substance: LISINOPRIL

REACTIONS (9)
  - Pain in extremity [None]
  - Muscle injury [None]
  - Fatigue [None]
  - Pain [None]
  - Weight increased [None]
  - Neck pain [None]
  - Arthralgia [None]
  - Asthenia [None]
  - Dyspnoea [None]

NARRATIVE: CASE EVENT DATE: 20161218
